FAERS Safety Report 11261694 (Version 4)
Quarter: 2017Q1

REPORT INFORMATION
  Report Type: Spontaneous
  Country: JP (occurrence: JP)
  Receive Date: 20150710
  Receipt Date: 20170306
  Transmission Date: 20170428
  Serious: Yes (Hospitalization)
  Sender: FDA-Public Use
  Company Number: JP-ELI_LILLY_AND_COMPANY-JP201506008428

PATIENT
  Sex: Male
  Weight: 60 kg

DRUGS (9)
  1. ALIMTA [Suspect]
     Active Substance: PEMETREXED DISODIUM
     Indication: LUNG ADENOCARCINOMA STAGE IV
     Dosage: 650 MG, OTHER
     Route: 042
     Dates: start: 20140114, end: 20140512
  2. ALIMTA [Suspect]
     Active Substance: PEMETREXED DISODIUM
     Dosage: UNK
     Route: 042
     Dates: start: 20140903, end: 20140903
  3. ALIMTA [Suspect]
     Active Substance: PEMETREXED DISODIUM
     Dosage: 650 MG, OTHER
     Route: 042
     Dates: start: 20140926, end: 20141121
  4. CARBOPLATIN. [Concomitant]
     Active Substance: CARBOPLATIN
     Dosage: UNK
     Dates: start: 20140903, end: 20140903
  5. PANVITAN                           /07504101/ [Concomitant]
     Indication: PROPHYLAXIS
     Dosage: UNK
     Route: 048
     Dates: start: 20140107, end: 20150611
  6. METHYCOBAL [Concomitant]
     Active Substance: METHYLCOBALAMIN
     Indication: PROPHYLAXIS
     Dosage: UNK
     Route: 030
     Dates: start: 20140107, end: 20150303
  7. CARBOPLATIN. [Concomitant]
     Active Substance: CARBOPLATIN
     Indication: LUNG ADENOCARCINOMA STAGE IV
     Dosage: 300 MG, OTHER
     Dates: start: 20140114, end: 20140512
  8. ALIMTA [Suspect]
     Active Substance: PEMETREXED DISODIUM
     Dosage: 300 MG, OTHER
     Route: 042
     Dates: start: 20141219, end: 20150303
  9. DEXAMETHASONE. [Concomitant]
     Active Substance: DEXAMETHASONE
     Dosage: UNK
     Dates: start: 20140114

REACTIONS (2)
  - Sclerema [Recovering/Resolving]
  - Malaise [Unknown]

NARRATIVE: CASE EVENT DATE: 2014
